FAERS Safety Report 22041972 (Version 1)
Quarter: 2023Q1

REPORT INFORMATION
  Report Type: Spontaneous
  Country: US (occurrence: US)
  Receive Date: 20230227
  Receipt Date: 20230227
  Transmission Date: 20230417
  Serious: Yes (Hospitalization)
  Sender: FDA-Public Use
  Company Number: US-WOODWARD-2023-US-004085

PATIENT
  Age: 52 Year
  Sex: Female

DRUGS (3)
  1. CARVEDILOL [Suspect]
     Active Substance: CARVEDILOL
     Indication: Intentional overdose
     Dosage: ^HANDFULS^
     Route: 065
  2. SPIRONOLACTONE [Suspect]
     Active Substance: SPIRONOLACTONE
     Indication: Intentional overdose
     Dosage: ^HANDFULS^
     Route: 065
  3. DILTIAZEM [Suspect]
     Active Substance: DILTIAZEM
     Indication: Intentional overdose
     Route: 065

REACTIONS (6)
  - Confusional state [Recovered/Resolved]
  - Suicidal ideation [Unknown]
  - Hypotension [Unknown]
  - Bradycardia [Unknown]
  - Overdose [Recovered/Resolved]
  - Suicide attempt [Recovered/Resolved]
